FAERS Safety Report 23343319 (Version 5)
Quarter: 2025Q2

REPORT INFORMATION
  Report Type: Spontaneous
  Country: US (occurrence: US)
  Receive Date: 20231227
  Receipt Date: 20250403
  Transmission Date: 20250717
  Serious: Yes (Hospitalization)
  Sender: BIOGEN
  Company Number: US-BIOGEN-2023BI01241331

PATIENT
  Age: 40 Year
  Sex: Female

DRUGS (8)
  1. QALSODY [Suspect]
     Active Substance: TOFERSEN
     Indication: Amyotrophic lateral sclerosis
     Route: 050
     Dates: start: 202211
  2. QALSODY [Suspect]
     Active Substance: TOFERSEN
     Route: 050
     Dates: start: 20231215
  3. RILUTEK [Concomitant]
     Active Substance: RILUZOLE
     Indication: Amyotrophic lateral sclerosis
     Route: 050
     Dates: start: 20231023
  4. RELYVRIO [Concomitant]
     Active Substance: SODIUM PHENYLBUTYRATE\TAURURSODIOL
     Indication: Amyotrophic lateral sclerosis
     Dosage: 1 PACKET BY MOUTH 2 TIMES A DAY; DISSOLVE EACH PACKET IN 8 OZ OF WATER
     Route: 050
     Dates: start: 20231013, end: 20231228
  5. METHYLCOBALAMIN [Concomitant]
     Active Substance: METHYLCOBALAMIN
     Indication: Amyotrophic lateral sclerosis
     Route: 050
  6. Basis [Concomitant]
     Indication: Amyotrophic lateral sclerosis
     Route: 050
  7. theracumin [Concomitant]
     Indication: Amyotrophic lateral sclerosis
     Route: 050
  8. PROTONIX [Concomitant]
     Active Substance: PANTOPRAZOLE SODIUM
     Indication: Product used for unknown indication
     Route: 050
     Dates: start: 20231222

REACTIONS (2)
  - Meningitis aseptic [Not Recovered/Not Resolved]
  - Nerve degeneration [Unknown]

NARRATIVE: CASE EVENT DATE: 20231215
